FAERS Safety Report 7270885-2 (Version None)
Quarter: 2011Q1

REPORT INFORMATION
  Report Type: 
  Country: None (occurrence: None)
  Receive Date: 20110202
  Receipt Date: 20110124
  Transmission Date: 20110831
  Serious: Yes (Hospitalization)
  Sender: FDA-Public Use
  Company Number: FR-ASTRAZENECA-2011SE00708

PATIENT
  Age: 65 Year
  Sex: Male

DRUGS (8)
  1. NEXIUM [Suspect]
     Route: 048
  2. CORTANCYL [Suspect]
  3. ZELITREX [Concomitant]
  4. CELLCEPT [Suspect]
     Route: 048
  5. SPASFON [Suspect]
     Route: 048
  6. PROGRAF [Suspect]
     Route: 048
  7. SMECTA [Concomitant]
  8. ROVALCYTE [Suspect]
     Route: 048
     Dates: start: 20101029

REACTIONS (1)
  - LUNG DISORDER [None]
